FAERS Safety Report 24254072 (Version 1)
Quarter: 2024Q3

REPORT INFORMATION
  Report Type: Spontaneous
  Country: FR (occurrence: FR)
  Receive Date: 20240827
  Receipt Date: 20240827
  Transmission Date: 20241017
  Serious: Yes (Hospitalization)
  Sender: PFIZER
  Company Number: None

PATIENT
  Age: 81 Year
  Sex: Male
  Weight: 141 kg

DRUGS (13)
  1. CLINDAMYCIN HYDROCHLORIDE [Suspect]
     Active Substance: CLINDAMYCIN HYDROCHLORIDE
     Indication: Device related infection
     Dosage: FREQ:8 H;600 MG 1-1-1
     Route: 048
     Dates: start: 20240722, end: 20240731
  2. LEVOFLOXACIN [Suspect]
     Active Substance: LEVOFLOXACIN
     Indication: Device related infection
     Dosage: FREQ:12 H;500 MG 1-0-1
     Route: 048
     Dates: start: 20240722, end: 20240731
  3. PIPERACILLIN SODIUM\TAZOBACTAM SODIUM [Concomitant]
     Active Substance: PIPERACILLIN SODIUM\TAZOBACTAM SODIUM
     Indication: Device related infection
     Dosage: FREQ:6 H;4/0.5 G EVERY 6 HOURS
     Route: 042
     Dates: start: 20240718, end: 20240721
  4. DAPTOMYCIN [Concomitant]
     Active Substance: DAPTOMYCIN
     Indication: Device related infection
     Dosage: 1000 MG, 1X/DAY
     Route: 042
     Dates: start: 20240718, end: 20240721
  5. ATORVASTATIN [Concomitant]
     Active Substance: ATORVASTATIN
     Dosage: 80 MG: 1 TABLET IN THE EVENING
  6. METFORMIN HYDROCHLORIDE [Concomitant]
     Active Substance: METFORMIN HYDROCHLORIDE
     Dosage: 1 G MORNING AND EVENING
  7. OXYCODONE [Concomitant]
     Active Substance: OXYCODONE
     Dosage: 10 MG 1 TABLET IN THE MORNING AND EVENING
  8. OXYCODONE HYDROCHLORIDE [Concomitant]
     Active Substance: OXYCODONE HYDROCHLORIDE
     Dosage: 5 MG 1 TABLET/6H IF PAIN DESPITE PARACETAMOL
  9. ACETAMINOPHEN [Concomitant]
     Active Substance: ACETAMINOPHEN
     Dosage: 1 G/6 H IF PAIN
  10. INDAPAMIDE\PERINDOPRIL ARGININE [Concomitant]
     Active Substance: INDAPAMIDE\PERINDOPRIL ARGININE
     Dosage: 1 TABLET IN THE MORNING
  11. SOLIFENACIN [Concomitant]
     Active Substance: SOLIFENACIN
     Dosage: 10 MG 1 TABLET IN THE EVENING
  12. LARMABAK [Concomitant]
     Dosage: ONE ADMINISTRATION MORNING, NOON AND EVENING
  13. LOVENOX [Concomitant]
     Active Substance: ENOXAPARIN SODIUM
     Dosage: 4000 IU, 2X/DAY

REACTIONS (1)
  - Cutaneous vasculitis [Recovering/Resolving]

NARRATIVE: CASE EVENT DATE: 20240726
